FAERS Safety Report 6303889-4 (Version None)
Quarter: 2009Q3

REPORT INFORMATION
  Report Type: 
  Country: None (occurrence: None)
  Receive Date: 20090807
  Receipt Date: 20090807
  Transmission Date: 20100115
  Serious: Yes (Disabling)
  Sender: FDA-Public Use
  Company Number: None

PATIENT
  Age: 57 Year
  Sex: Female
  Weight: 80.7403 kg

DRUGS (2)
  1. ZICAM COLD REMEDY ORAL SPRAY [Suspect]
     Indication: NASOPHARYNGITIS
     Dosage: ZICAM COLD REMEDY ORAL SPRAY, 2X DAILY, ORAL
     Route: 048
     Dates: start: 20081001
  2. ZICAM COLD REMEDY ORAL SPRAY [Suspect]
     Indication: NASOPHARYNGITIS
     Dosage: ZICAM COLD REMEDY, ORAL SPRAY, 2 X DAILY, ORAL
     Route: 048
     Dates: start: 20081201, end: 20090101

REACTIONS (3)
  - AGEUSIA [None]
  - ANOSMIA [None]
  - DYSGEUSIA [None]
